FAERS Safety Report 25684711 (Version 1)
Quarter: 2025Q3

REPORT INFORMATION
  Report Type: Spontaneous
  Country: US (occurrence: US)
  Receive Date: 20250815
  Receipt Date: 20250815
  Transmission Date: 20251020
  Serious: No
  Sender: ROCHE
  Company Number: US-ROCHE-10000361503

PATIENT
  Sex: Female

DRUGS (1)
  1. COBIMETINIB [Suspect]
     Active Substance: COBIMETINIB
     Indication: Mantle cell lymphoma recurrent
     Route: 065

REACTIONS (2)
  - Off label use [Unknown]
  - No adverse event [Unknown]
